FAERS Safety Report 18688433 (Version 3)
Quarter: 2021Q1

REPORT INFORMATION
  Report Type: Spontaneous
  Country: US (occurrence: US)
  Receive Date: 20201231
  Receipt Date: 20210122
  Transmission Date: 20210419
  Serious: Yes (Death, Hospitalization, Other)
  Sender: FDA-Public Use
  Company Number: US-AUROBINDO-AUR-APL-2020-063445

PATIENT
  Sex: Male
  Weight: 59.5 kg

DRUGS (6)
  1. CLOZAPINE TABLET USP 25 MG [Suspect]
     Active Substance: CLOZAPINE
     Indication: DELUSION
  2. CLOZAPINE TABLET USP 25 MG [Suspect]
     Active Substance: CLOZAPINE
     Indication: HALLUCINATION
     Dosage: 12.5 MILLIGRAM, HS
     Route: 048
     Dates: start: 20190808, end: 20200812
  3. SCOPALAMIN [Concomitant]
     Indication: PRODUCT USED FOR UNKNOWN INDICATION
     Dosage: UNK
     Route: 065
  4. LORAZEPAM. [Concomitant]
     Active Substance: LORAZEPAM
     Indication: PRODUCT USED FOR UNKNOWN INDICATION
     Dosage: UNK
     Route: 065
  5. MORPHINE [Concomitant]
     Active Substance: MORPHINE
     Indication: PRODUCT USED FOR UNKNOWN INDICATION
     Dosage: UNK
     Route: 065
  6. OLANZAPINE. [Concomitant]
     Active Substance: OLANZAPINE
     Indication: PRODUCT USED FOR UNKNOWN INDICATION
     Dosage: UNK
     Route: 065

REACTIONS (2)
  - Death [Fatal]
  - Parkinson^s disease [Unknown]

NARRATIVE: CASE EVENT DATE: 20200812
